FAERS Safety Report 14081155 (Version 1)
Quarter: 2017Q4

REPORT INFORMATION
  Report Type: Spontaneous
  Country: US (occurrence: US)
  Receive Date: 20171012
  Receipt Date: 20171012
  Transmission Date: 20180321
  Serious: No
  Sender: FDA-Public Use
  Company Number: None

PATIENT
  Age: 71 Year
  Sex: Female
  Weight: 81.45 kg

DRUGS (11)
  1. TESTOSTERONE. [Concomitant]
     Active Substance: TESTOSTERONE
  2. METFORMIN HYDROCHLORIDE. [Concomitant]
     Active Substance: METFORMIN HYDROCHLORIDE
  3. COSTCO SENIOR VIT [Concomitant]
  4. VITAMIN B12 [Concomitant]
     Active Substance: CYANOCOBALAMIN
  5. ALEVE [Concomitant]
     Active Substance: NAPROXEN SODIUM
  6. PANTOPRAZOLE SOD [Suspect]
     Active Substance: PANTOPRAZOLE SODIUM
     Indication: ULCER
     Dosage: ?          QUANTITY:1 TABLET(S);?
     Route: 048
     Dates: start: 20170930, end: 20171010
  7. MINIVELLE ESTRADIOL TRANS DERMAL PATCH [Concomitant]
  8. PANTOPRAZOLE SOD [Suspect]
     Active Substance: PANTOPRAZOLE SODIUM
     Indication: GASTROOESOPHAGEAL REFLUX DISEASE
     Dosage: ?          QUANTITY:1 TABLET(S);?
     Route: 048
     Dates: start: 20170930, end: 20171010
  9. ZYRTEC [Concomitant]
     Active Substance: CETIRIZINE HYDROCHLORIDE
  10. POTASSIUM CITRATE. [Concomitant]
     Active Substance: POTASSIUM CITRATE
  11. MELATONIN [Concomitant]
     Active Substance: MELATONIN

REACTIONS (11)
  - Tinnitus [None]
  - Headache [None]
  - Muscle spasms [None]
  - Barrett^s oesophagus [None]
  - Arthralgia [None]
  - Chills [None]
  - Chest pain [None]
  - Dizziness [None]
  - Pruritus [None]
  - Migraine [None]
  - Feeling cold [None]

NARRATIVE: CASE EVENT DATE: 20171010
